FAERS Safety Report 6013928-6 (Version None)
Quarter: 2008Q4

REPORT INFORMATION
  Report Type: 
  Country: None (occurrence: None)
  Receive Date: 20081219
  Receipt Date: 20081119
  Transmission Date: 20090506
  Serious: Yes (Other)
  Sender: FDA-Public Use
  Company Number: US-MERCK-0812USA03300

PATIENT
  Age: 78 Year
  Sex: Female
  Weight: 67 kg

DRUGS (21)
  1. ZETIA [Suspect]
     Route: 048
  2. MIRALAX [Suspect]
     Indication: CONSTIPATION
     Route: 048
     Dates: start: 20081102, end: 20081105
  3. LOTREL [Suspect]
     Route: 048
  4. LESCOL XL [Suspect]
     Route: 048
  5. FOSAMAX [Suspect]
     Route: 048
  6. PLAVIX [Suspect]
     Route: 048
  7. TRAMADOL HYDROCHLORIDE [Suspect]
     Route: 048
  8. ALLOPURINOL [Concomitant]
     Route: 048
  9. FOLIC ACID [Concomitant]
     Route: 048
  10. ASPIRIN [Concomitant]
     Route: 048
  11. IRON (UNSPECIFIED) [Concomitant]
     Route: 065
  12. LYRICA [Concomitant]
     Route: 048
  13. SYNTHROID [Concomitant]
     Route: 048
  14. ZYDONE [Concomitant]
     Route: 048
  15. PROLOSEC OTC [Concomitant]
     Route: 048
  16. ASCORBIC ACID [Concomitant]
     Route: 048
  17. VITAMINS (UNSPECIFIED) [Concomitant]
     Route: 048
  18. PROCRIT [Concomitant]
     Route: 065
  19. METAMUCIL [Concomitant]
     Route: 048
  20. AVAPRO [Concomitant]
     Route: 048
  21. FLONASE [Concomitant]
     Route: 065

REACTIONS (11)
  - ASTHENIA [None]
  - CONDITION AGGRAVATED [None]
  - DEHYDRATION [None]
  - DIARRHOEA [None]
  - DIZZINESS [None]
  - FATIGUE [None]
  - HEADACHE [None]
  - NAUSEA [None]
  - RETCHING [None]
  - SWOLLEN TONGUE [None]
  - VOMITING [None]
